FAERS Safety Report 5764485-0 (Version None)
Quarter: 2008Q2

REPORT INFORMATION
  Report Type: 
  Country: None (occurrence: None)
  Receive Date: 20080610
  Receipt Date: 20080529
  Transmission Date: 20081010
  Serious: No
  Sender: FDA-Public Use
  Company Number: GB-PFIZER INC-2008041386

PATIENT
  Sex: Male

DRUGS (1)
  1. HEPARIN SODIUM [Suspect]
     Route: 058

REACTIONS (1)
  - NO ADVERSE EVENT [None]
